FAERS Safety Report 5352015-7 (Version None)
Quarter: 2007Q2

REPORT INFORMATION
  Report Type: 
  Country: None (occurrence: None)
  Receive Date: 20070611
  Receipt Date: 20070605
  Transmission Date: 20071010
  Serious: Yes (Life-Threatening, Hospitalization)
  Sender: FDA-Public Use
  Company Number: PHEH2007US08347

PATIENT
  Age: 82 Year
  Sex: Female
  Weight: 64 kg

DRUGS (1)
  1. ENABLEX [Suspect]
     Indication: NOCTURIA
     Dosage: 7.5 MG, QHS
     Dates: start: 20070426, end: 20070426

REACTIONS (5)
  - CHEST PAIN [None]
  - ELECTROCARDIOGRAM ST-T CHANGE [None]
  - HYPERTENSION [None]
  - MYOCARDIAL INFARCTION [None]
  - TROPONIN INCREASED [None]
